FAERS Safety Report 5102882-7 (Version None)
Quarter: 2006Q3

REPORT INFORMATION
  Report Type: 
  Country: None (occurrence: None)
  Receive Date: 20060907
  Receipt Date: 20060808
  Transmission Date: 20061208
  Serious: Yes (Death)
  Sender: FDA-Public Use
  Company Number: POMP-10786

PATIENT
  Age: 4 Month
  Sex: Male
  Weight: 5.12 kg

DRUGS (5)
  1. MYOZYME [Suspect]
     Indication: GLYCOGEN STORAGE DISEASE TYPE II
     Dosage: 20 MG/KG Q2WKS IV
     Route: 042
  2. FUROSEMIDE [Concomitant]
  3. DIAZEPAM [Concomitant]
  4. PROPRANOLOL [Concomitant]
  5. SPIROOLACTONE [Concomitant]

REACTIONS (3)
  - BRADYCARDIA [None]
  - CARDIO-RESPIRATORY ARREST [None]
  - VENTRICULAR FIBRILLATION [None]
